FAERS Safety Report 8457324-0 (Version None)
Quarter: 2012Q2

REPORT INFORMATION
  Report Type: 
  Country: None (occurrence: None)
  Receive Date: 20120621
  Receipt Date: 20120619
  Transmission Date: 20120825
  Serious: Yes (Other)
  Sender: FDA-Public Use
  Company Number: US-PFIZER INC-2012148286

PATIENT
  Sex: Female
  Weight: 124.72 kg

DRUGS (2)
  1. REVATIO [Suspect]
     Dosage: 10 MG, 3X/DAY
     Route: 048
  2. REVATIO [Suspect]
     Indication: PULMONARY HYPERTENSION
     Dosage: 20 MG, 3X/DAY
     Route: 048
     Dates: start: 20110101

REACTIONS (6)
  - UPPER LIMB FRACTURE [None]
  - SYNCOPE [None]
  - FALL [None]
  - PAIN [None]
  - LOWER LIMB FRACTURE [None]
  - BLOOD PRESSURE DECREASED [None]
